FAERS Safety Report 24224542 (Version 1)
Quarter: 2024Q3

REPORT INFORMATION
  Report Type: Spontaneous
  Country: US (occurrence: US)
  Receive Date: 20240819
  Receipt Date: 20240819
  Transmission Date: 20241017
  Serious: Yes (Hospitalization, Other)
  Sender: MERCK
  Company Number: US-009507513-2408USA004292

PATIENT
  Age: 67 Year
  Sex: Female

DRUGS (2)
  1. KEYTRUDA [Suspect]
     Active Substance: PEMBROLIZUMAB
     Indication: Endometrial cancer
     Dosage: UNK
     Dates: end: 20240731
  2. LENVATINIB MESYLATE [Suspect]
     Active Substance: LENVATINIB MESYLATE
     Indication: Endometrial cancer
     Dosage: 14 MILLIGRAM
     Route: 048
     Dates: start: 20231228

REACTIONS (7)
  - Intestinal obstruction [Unknown]
  - Ascites [Unknown]
  - Blood pressure increased [Unknown]
  - Peripheral swelling [Unknown]
  - Dysphagia [Unknown]
  - Drug ineffective [Unknown]
  - Product use issue [Unknown]

NARRATIVE: CASE EVENT DATE: 20231228
